FAERS Safety Report 10772225 (Version 1)
Quarter: 2015Q1

REPORT INFORMATION
  Report Type: Spontaneous
  Country: US (occurrence: US)
  Receive Date: 20150206
  Receipt Date: 20150206
  Transmission Date: 20150721
  Serious: Yes (Hospitalization)
  Sender: FDA-Public Use
  Company Number: US-ASTRAZENECA-2015SE09895

PATIENT
  Sex: Female

DRUGS (4)
  1. PRILOSEC [Suspect]
     Active Substance: OMEPRAZOLE MAGNESIUM
     Indication: ULCER HAEMORRHAGE
     Route: 048
     Dates: start: 20100601
  2. ATACAND [Suspect]
     Active Substance: CANDESARTAN CILEXETIL
     Route: 065
  3. PRILOSEC [Suspect]
     Active Substance: OMEPRAZOLE MAGNESIUM
     Indication: GASTROOESOPHAGEAL REFLUX DISEASE
     Route: 048
     Dates: start: 20100601
  4. ARIMIDEX [Suspect]
     Active Substance: ANASTROZOLE
     Route: 048

REACTIONS (6)
  - Rhabdomyolysis [Unknown]
  - Acute kidney injury [Unknown]
  - Myalgia [Unknown]
  - Product use issue [Unknown]
  - Atrial fibrillation [Unknown]
  - Arthralgia [Unknown]

NARRATIVE: CASE EVENT DATE: 200411
